FAERS Safety Report 17543622 (Version 1)
Quarter: 2020Q1

REPORT INFORMATION
  Report Type: Spontaneous
  Country: DE (occurrence: DE)
  Receive Date: 20200316
  Receipt Date: 20200316
  Transmission Date: 20200409
  Serious: Yes (Death, Hospitalization)
  Sender: FDA-Public Use
  Company Number: DE-TEVA-2020-DE-1199855

PATIENT
  Age: 64 Year
  Sex: Male

DRUGS (3)
  1. MCP [Concomitant]
     Active Substance: METOCLOPRAMIDE HYDROCHLORIDE
     Dosage: 10 MG, DEMAND
  2. PREDNISOLON [Suspect]
     Active Substance: PREDNISOLONE
     Dosage: 10 MILLIGRAM DAILY; 1-0-1-0
  3. CABAZITAXEL [Suspect]
     Active Substance: CABAZITAXEL
     Dosage: FOR THE FIRST TIME ON 11112019
     Dates: start: 20191111

REACTIONS (5)
  - General physical health deterioration [Unknown]
  - Abdominal pain [Unknown]
  - Dyspnoea exertional [Unknown]
  - Fatigue [Unknown]
  - Anaemia [Unknown]
